FAERS Safety Report 23110897 (Version 1)
Quarter: 2023Q4

REPORT INFORMATION
  Report Type: Spontaneous
  Country: US (occurrence: US)
  Receive Date: 20231026
  Receipt Date: 20231026
  Transmission Date: 20240110
  Serious: No
  Sender: FDA-Public Use
  Company Number: US-JNJFOC-20231052841

PATIENT
  Age: 67 Year
  Sex: Female
  Weight: 65.8 kg

DRUGS (19)
  1. OPSUMIT [Suspect]
     Active Substance: MACITENTAN
     Indication: Product used for unknown indication
     Route: 048
     Dates: start: 20230710
  2. TYVASO [Suspect]
     Active Substance: TREPROSTINIL
     Indication: Pulmonary arterial hypertension
     Route: 055
  3. PAXLOVID [Suspect]
     Active Substance: NIRMATRELVIR\RITONAVIR
     Indication: COVID-19
     Route: 065
     Dates: start: 20230710
  4. POTASSIUM CHLORIDE [Concomitant]
     Active Substance: POTASSIUM CHLORIDE
  5. FUROSEMIDE [Concomitant]
     Active Substance: FUROSEMIDE
  6. CALCIUM\CHOLECALCIFEROL [Concomitant]
     Active Substance: CALCIUM\CHOLECALCIFEROL
  7. ADEMPAS [Concomitant]
     Active Substance: RIOCIGUAT
  8. GARLIC OIL [Concomitant]
     Active Substance: GARLIC OIL
  9. OXYGEN [Concomitant]
     Active Substance: OXYGEN
  10. PREDNISONE [Concomitant]
     Active Substance: PREDNISONE
  11. SENNA S [Concomitant]
     Active Substance: DOCUSATE SODIUM\SENNA LEAF
  12. ASCORBIC ACID [Concomitant]
     Active Substance: ASCORBIC ACID
  13. ASPIRIN [Concomitant]
     Active Substance: ASPIRIN
  14. SERTRALINE HYDROCHLORIDE [Concomitant]
     Active Substance: SERTRALINE HYDROCHLORIDE
  15. PANTOPRAZOLE SODIUM [Concomitant]
     Active Substance: PANTOPRAZOLE SODIUM
  16. PEMBROLIZUMAB [Concomitant]
     Active Substance: PEMBROLIZUMAB
  17. OXYCODONE [Concomitant]
     Active Substance: OXYCODONE
  18. ATORVASTATIN CALCIUM [Concomitant]
     Active Substance: ATORVASTATIN CALCIUM
  19. COVID-19 VACCINE [Concomitant]

REACTIONS (4)
  - Urinary tract infection [Unknown]
  - COVID-19 [Unknown]
  - Headache [Unknown]
  - Therapy non-responder [Unknown]
